FAERS Safety Report 8473609-6 (Version None)
Quarter: 2012Q2

REPORT INFORMATION
  Report Type: 
  Country: None (occurrence: None)
  Receive Date: 20120628
  Receipt Date: 20110727
  Transmission Date: 20120825
  Serious: Yes (Other)
  Sender: FDA-Public Use
  Company Number: US-MYLANLABS-2011S1013970

PATIENT
  Age: 46 Year
  Sex: Female

DRUGS (8)
  1. CLOZAPINE [Suspect]
     Indication: SCHIZOPHRENIA
     Dates: end: 20110704
  2. LORAZEPAM [Concomitant]
  3. ZOLPIDEM [Concomitant]
  4. BENZTROPINE MESYLATE [Concomitant]
  5. LITHIUM CARBONATE [Concomitant]
  6. ZYPREXA [Concomitant]
  7. CLONAZEPAM [Concomitant]
     Dosage: 1-2 MG
  8. SEROQUEL [Concomitant]

REACTIONS (2)
  - LEUKOPENIA [None]
  - GRANULOCYTOPENIA [None]
